FAERS Safety Report 15089886 (Version 2)
Quarter: 2018Q3

REPORT INFORMATION
  Report Type: Report from Study
  Country: US (occurrence: US)
  Receive Date: 20180629
  Receipt Date: 20180802
  Transmission Date: 20181010
  Serious: Yes (Other)
  Sender: FDA-Public Use
  Company Number: US-ASTRAZENECA-2018SE82415

PATIENT
  Sex: Male
  Weight: 61.2 kg

DRUGS (15)
  1. SPIRIVA [Concomitant]
     Active Substance: TIOTROPIUM BROMIDE MONOHYDRATE
  2. ADVAIR DISKUS [Concomitant]
     Active Substance: FLUTICASONE PROPIONATE\SALMETEROL XINAFOATE
  3. ALFUZOSIN [Concomitant]
     Active Substance: ALFUZOSIN
  4. VITAMIN C [Concomitant]
     Active Substance: ASCORBIC ACID
  5. CALQUENCE [Suspect]
     Active Substance: ACALABRUTINIB
     Indication: MANTLE CELL LYMPHOMA
     Route: 048
     Dates: start: 20180608
  6. MUCINEX [Concomitant]
     Active Substance: GUAIFENESIN
  7. ADVIL [Concomitant]
     Active Substance: IBUPROFEN
  8. APAP [Concomitant]
     Active Substance: ACETAMINOPHEN
  9. CENTRUM SILVER [Concomitant]
     Active Substance: MINERALS\VITAMINS
  10. LOSARTAN. [Concomitant]
     Active Substance: LOSARTAN
  11. SIMETHICONE (DIMETHICONE) [Concomitant]
     Active Substance: DIMETHICONE
  12. FAMOTIDINE. [Concomitant]
     Active Substance: FAMOTIDINE
  13. TYLENOL [Concomitant]
     Active Substance: ACETAMINOPHEN
  14. IBUPROFEN. [Concomitant]
     Active Substance: IBUPROFEN
  15. MELATONIN [Concomitant]
     Active Substance: MELATONIN

REACTIONS (6)
  - Vomiting [Unknown]
  - Nausea [Unknown]
  - Headache [Unknown]
  - Chest discomfort [Unknown]
  - Dyspnoea [Unknown]
  - Insomnia [Unknown]
